FAERS Safety Report 19084659 (Version 3)
Quarter: 2022Q3

REPORT INFORMATION
  Report Type: Spontaneous
  Country: US (occurrence: US)
  Receive Date: 20210401
  Receipt Date: 20220720
  Transmission Date: 20221027
  Serious: Yes (Life-Threatening, Other)
  Sender: FDA-Public Use
  Company Number: US-PFIZER INC-2021338923

PATIENT
  Age: 55 Year
  Sex: Male
  Weight: 108.9 kg

DRUGS (5)
  1. ALPRAZOLAM [Suspect]
     Active Substance: ALPRAZOLAM
     Dosage: 30 ALPRAZOLAM 2 MG TABLETS
  2. LORAZEPAM [Suspect]
     Active Substance: LORAZEPAM
     Dosage: 26 LORAZEPAM 1 MG TABLETS
  3. ACETAMINOPHEN [Suspect]
     Active Substance: ACETAMINOPHEN
     Dosage: BETWEEN 5-15 ACETAMINOPHEN
  4. CODEINE [Suspect]
     Active Substance: CODEINE
     Dosage: UNK
  5. TRAMADOL [Suspect]
     Active Substance: TRAMADOL
     Dosage: 5-15 TRAMADOL TABLETS

REACTIONS (2)
  - Intentional overdose [Unknown]
  - Suicidal ideation [Unknown]
